FAERS Safety Report 4598531-7 (Version None)
Quarter: 2005Q1

REPORT INFORMATION
  Report Type: 
  Country: None (occurrence: None)
  Receive Date: 20050304
  Receipt Date: 20050222
  Transmission Date: 20050727
  Serious: Yes (Hospitalization)
  Sender: FDA-Public Use
  Company Number: AT-MERCK-0502AUT00015

PATIENT
  Sex: Female

DRUGS (1)
  1. ZETIA [Suspect]
     Route: 065

REACTIONS (1)
  - JAUNDICE [None]
